FAERS Safety Report 9228854 (Version 5)
Quarter: 2014Q3

REPORT INFORMATION
  Report Type: Spontaneous
  Country: US (occurrence: US)
  Receive Date: 20130412
  Receipt Date: 20140917
  Transmission Date: 20150326
  Serious: Yes (Disabling, Other)
  Sender: FDA-Public Use
  Company Number: US-009507513-1304USA005196

PATIENT
  Sex: Male

DRUGS (2)
  1. PROPECIA [Suspect]
     Active Substance: FINASTERIDE
     Indication: ALOPECIA
     Dosage: 1 MG, QD
     Route: 048
     Dates: start: 1997, end: 2010
  2. FINASTERIDE. [Suspect]
     Active Substance: FINASTERIDE
     Indication: ALOPECIA
     Dosage: 5 MG, QD
     Route: 048
     Dates: start: 20100818

REACTIONS (19)
  - Carpal tunnel syndrome [Unknown]
  - Erectile dysfunction [Unknown]
  - Emotional distress [Not Recovered/Not Resolved]
  - Haemorrhoids [Unknown]
  - Scrotal varicose veins [Unknown]
  - Sexual dysfunction [Not Recovered/Not Resolved]
  - Drug administration error [Unknown]
  - Organic erectile dysfunction [Unknown]
  - Rhinitis allergic [Unknown]
  - Joint injury [Unknown]
  - Psychosexual disorder [Unknown]
  - Accident [Unknown]
  - Injury [Unknown]
  - Skin neoplasm excision [Recovered/Resolved]
  - Ejaculation disorder [Unknown]
  - Anxiety [Not Recovered/Not Resolved]
  - Humerus fracture [Unknown]
  - Terminal dribbling [Unknown]
  - Benign neoplasm of skin [Recovered/Resolved]

NARRATIVE: CASE EVENT DATE: 199903
